FAERS Safety Report 4557174-1 (Version None)
Quarter: 2005Q1

REPORT INFORMATION
  Report Type: 
  Country: None (occurrence: None)
  Receive Date: 20050118
  Receipt Date: 20050112
  Transmission Date: 20050727
  Serious: Yes (Life-Threatening, Other)
  Sender: FDA-Public Use
  Company Number: 200410597BFR

PATIENT
  Age: 79 Year
  Sex: Female
  Weight: 75 kg

DRUGS (3)
  1. MOXIFLOXACIN HYDROCHLORIDE [Suspect]
     Indication: BRONCHITIS
     Dosage: 400 MG, TOTAL DAILY, ORAL
     Route: 048
     Dates: start: 20030203, end: 20030206
  2. PREVISCAN (UNCODEABLE ^UNCLASSIFIABLE^) [Suspect]
     Dosage: SEE IMAGE
     Route: 048
     Dates: end: 20030208
  3. PREVISCAN (UNCODEABLE ^UNCLASSIFIABLE^) [Suspect]
     Dosage: SEE IMAGE
     Route: 048
     Dates: start: 20030310

REACTIONS (6)
  - ABDOMINAL PAIN [None]
  - HAEMARTHROSIS [None]
  - INTERNATIONAL NORMALISED RATIO INCREASED [None]
  - MUSCLE HAEMORRHAGE [None]
  - PROTHROMBIN LEVEL DECREASED [None]
  - SUBCUTANEOUS HAEMATOMA [None]
